FAERS Safety Report 11670636 (Version 1)
Quarter: 2015Q4

REPORT INFORMATION
  Report Type: Spontaneous
  Country: US (occurrence: US)
  Receive Date: 20151027
  Receipt Date: 20151027
  Transmission Date: 20160304
  Serious: No
  Sender: FDA-Public Use
  Company Number: US-ELI_LILLY_AND_COMPANY-US201005005221

PATIENT
  Age: 85 Year
  Sex: Female

DRUGS (3)
  1. FORTEO [Suspect]
     Active Substance: TERIPARATIDE
     Dosage: 20 UG, DAILY (1/D)
     Route: 058
  2. CALCIUM [Concomitant]
     Active Substance: CALCIUM
     Dosage: 3 D/F, DAILY (1/D)
     Dates: end: 20100419
  3. CALCIUM [Concomitant]
     Active Substance: CALCIUM
     Dosage: 1 D/F, DAILY (1/D)
     Dates: start: 20100420

REACTIONS (1)
  - Blood calcium abnormal [Unknown]

NARRATIVE: CASE EVENT DATE: 20100419
